FAERS Safety Report 10484028 (Version 2)
Quarter: 2014Q4

REPORT INFORMATION
  Report Type: Spontaneous
  Country: CA (occurrence: CA)
  Receive Date: 20140930
  Receipt Date: 20141014
  Transmission Date: 20150528
  Serious: Yes (Hospitalization)
  Sender: FDA-Public Use
  Company Number: CA-NOVOPROD-423404

PATIENT
  Sex: Female

DRUGS (2)
  1. LEVEMIR PENFILL [Suspect]
     Active Substance: INSULIN DETEMIR
     Indication: PRODUCT USED FOR UNKNOWN INDICATION
     Dosage: UNKNOWN
     Route: 065
  2. VICTOZA [Suspect]
     Active Substance: LIRAGLUTIDE
     Indication: PRODUCT USED FOR UNKNOWN INDICATION
     Dosage: UNKNOWN
     Route: 065

REACTIONS (4)
  - Anxiety [Recovering/Resolving]
  - Nausea [Recovering/Resolving]
  - Non-cardiac chest pain [Recovering/Resolving]
  - Abdominal discomfort [Recovering/Resolving]
